FAERS Safety Report 9844586 (Version 2)
Quarter: 2014Q1

REPORT INFORMATION
  Report Type: Report from Study
  Country: DE (occurrence: DE)
  Receive Date: 20140127
  Receipt Date: 20140127
  Transmission Date: 20141002
  Serious: Yes (Other)
  Sender: FDA-Public Use
  Company Number: DE-BAYER-2013-117285

PATIENT
  Age: 47 Year
  Sex: Male

DRUGS (1)
  1. BETAFERON [Suspect]
     Indication: MULTIPLE SCLEROSIS
     Dosage: UNK
     Route: 058
     Dates: start: 20130513

REACTIONS (5)
  - Injection site necrosis [None]
  - Injection site necrosis [Recovered/Resolved]
  - Injection site abscess [Recovered/Resolved]
  - Necrosis [Recovered/Resolved]
  - Osteonecrosis [Recovered/Resolved]
